FAERS Safety Report 14665025 (Version 1)
Quarter: 2018Q1

REPORT INFORMATION
  Report Type: Spontaneous
  Country: IL (occurrence: IL)
  Receive Date: 20180321
  Receipt Date: 20180321
  Transmission Date: 20180509
  Serious: Yes (Hospitalization)
  Sender: FDA-Public Use
  Company Number: IL-NAPPMUNDI-GBR-2018-0054194

PATIENT
  Sex: Female

DRUGS (1)
  1. BUTRANS [Suspect]
     Active Substance: BUPRENORPHINE
     Indication: PRODUCT USED FOR UNKNOWN INDICATION
     Dosage: 30 MCG, Q1H [20MCG/H AND 10MCG/H STRENGTH]
     Route: 062

REACTIONS (2)
  - Confusional state [Recovering/Resolving]
  - Cognitive disorder [Recovering/Resolving]
